FAERS Safety Report 4459869-7 (Version None)
Quarter: 2004Q3

REPORT INFORMATION
  Report Type: 
  Country: None (occurrence: None)
  Receive Date: 20040928
  Receipt Date: 20030711
  Transmission Date: 20050211
  Serious: No
  Sender: FDA-Public Use
  Company Number: US-GLAXOSMITHKLINE-A0417177A

PATIENT
  Age: 80 Year
  Sex: Male

DRUGS (6)
  1. SEREVENT [Suspect]
     Indication: ASTHMA
     Dosage: 2PUFF TWICE PER DAY
     Route: 055
     Dates: start: 20030617
  2. FLOVENT [Concomitant]
  3. ALBUTEROL [Concomitant]
  4. IRBESARTAN [Concomitant]
  5. LOVASTATIN [Concomitant]
  6. RABEPRAZOLE SODIUM [Concomitant]

REACTIONS (2)
  - MOUTH ULCERATION [None]
  - ORAL PAIN [None]
